FAERS Safety Report 4404939-2 (Version None)
Quarter: 2004Q3

REPORT INFORMATION
  Report Type: 
  Country: None (occurrence: None)
  Receive Date: 20040716
  Receipt Date: 20040706
  Transmission Date: 20050211
  Serious: Yes (Death)
  Sender: FDA-Public Use
  Company Number: US-JNJFOC-20040701685

PATIENT

DRUGS (1)
  1. REOPRO [Suspect]
     Dosage: INTRAVENOUS
     Route: 042

REACTIONS (1)
  - HAEMORRHAGE [None]
